FAERS Safety Report 5866461-6 (Version None)
Quarter: 2008Q3

REPORT INFORMATION
  Report Type: 
  Country: None (occurrence: None)
  Receive Date: 20080902
  Receipt Date: 20080827
  Transmission Date: 20090109
  Serious: Yes (Hospitalization)
  Sender: FDA-Public Use
  Company Number: FR-WYE-G02066108

PATIENT
  Sex: Male

DRUGS (5)
  1. ADVIL LIQUI-GELS [Suspect]
     Dosage: OVERDOSE AMOUNT : UNSPECIFIED
     Route: 048
     Dates: start: 20060923, end: 20060923
  2. NIFLURIL [Suspect]
     Dosage: OVERDOSE AMOUNT : UNSPECIFIED
     Route: 048
     Dates: start: 20060923, end: 20060923
  3. LEXOMIL [Suspect]
     Dosage: OVERDOSE AMOUNT : UNSPECIFIED
     Route: 048
     Dates: start: 20060923, end: 20060923
  4. ACETAMINOPHEN [Suspect]
     Dosage: OVERDOSE AMOUNT : UNSPECIFIED
     Route: 048
     Dates: start: 20060923, end: 20060923
  5. NUREFLEX [Suspect]
     Dosage: OVERDOSE AMOUNT : UNSPECIFIED
     Route: 048
     Dates: start: 20060923, end: 20060923

REACTIONS (5)
  - CYTOLYTIC HEPATITIS [None]
  - HEPATITIS [None]
  - MULTIPLE DRUG OVERDOSE INTENTIONAL [None]
  - SOMNOLENCE [None]
  - SUICIDE ATTEMPT [None]
